FAERS Safety Report 25616976 (Version 1)
Quarter: 2025Q3

REPORT INFORMATION
  Report Type: Spontaneous
  Country: US (occurrence: None)
  Receive Date: 20250728
  Receipt Date: 20250728
  Transmission Date: 20251020
  Serious: Yes (Hospitalization)
  Sender: FDA-CTU
  Company Number: None

PATIENT
  Age: 84 Year
  Sex: Female

DRUGS (11)
  1. CAPECITABINE [Suspect]
     Active Substance: CAPECITABINE
     Indication: Colon cancer
     Dosage: FREQUENCY : TWICE A DAY;?
     Route: 048
     Dates: start: 20250723
  2. ATORVASTATIN [Concomitant]
     Active Substance: ATORVASTATIN
  3. CARVEDILOL [Concomitant]
     Active Substance: CARVEDILOL
  4. FUROSEMIDE [Concomitant]
     Active Substance: FUROSEMIDE
  5. PANTOPRAZOLE [Concomitant]
     Active Substance: PANTOPRAZOLE
  6. DIPHENOXYLATE/ATROPINE 2.5MG TABS [Concomitant]
  7. XARELTO [Suspect]
     Active Substance: RIVAROXABAN
  8. NIVESTYM 480MCG/0.8ML INJ SOL 0.8ML [Concomitant]
  9. RETACRIT 10,000UNT INJ, 1 ML [Concomitant]
  10. METRONIDAZOLE [Concomitant]
     Active Substance: METRONIDAZOLE
  11. NEOMYCIN 500MG TABLETS [Concomitant]

REACTIONS (2)
  - Throat tightness [None]
  - Chest discomfort [None]

NARRATIVE: CASE EVENT DATE: 20250726
